FAERS Safety Report 16608565 (Version 1)
Quarter: 2019Q3

REPORT INFORMATION
  Report Type: Spontaneous
  Country: US (occurrence: US)
  Receive Date: 20190722
  Receipt Date: 20190722
  Transmission Date: 20191004
  Serious: No
  Sender: FDA-Public Use
  Company Number: US-BAUSCH-BL-2019-019397

PATIENT
  Age: 80 Year
  Sex: Female

DRUGS (5)
  1. CARDIZEM CD [Suspect]
     Active Substance: DILTIAZEM HYDROCHLORIDE
     Dosage: DECREASE DOSE
     Route: 048
     Dates: end: 2019
  2. BABY ASPIRIN [Concomitant]
     Active Substance: ASPIRIN
     Indication: PRODUCT USED FOR UNKNOWN INDICATION
     Route: 048
  3. CARDIZEM CD [Suspect]
     Active Substance: DILTIAZEM HYDROCHLORIDE
     Indication: ATRIAL FIBRILLATION
     Dosage: START DATE: APPROXIMATELY 5 YEARS AGO FROM THE DATE OF REPORT
     Route: 048
  4. CARDIZEM CD [Suspect]
     Active Substance: DILTIAZEM HYDROCHLORIDE
     Dosage: TOOK 1 CAPSULE
     Route: 048
     Dates: start: 20190703
  5. CARDIZEM CD [Suspect]
     Active Substance: DILTIAZEM HYDROCHLORIDE
     Dosage: INCREASED DOSE TO 2 CAPSULES A DAY IN THE MORNING
     Route: 048

REACTIONS (3)
  - Headache [Recovering/Resolving]
  - Product availability issue [Unknown]
  - Intentional product use issue [Unknown]

NARRATIVE: CASE EVENT DATE: 20190701
